FAERS Safety Report 12622293 (Version 4)
Quarter: 2016Q4

REPORT INFORMATION
  Report Type: Spontaneous
  Country: IT (occurrence: IT)
  Receive Date: 20160804
  Receipt Date: 20161130
  Transmission Date: 20170207
  Serious: Yes (Other)
  Sender: FDA-Public Use
  Company Number: IT-TEVA-680801ACC

PATIENT
  Sex: Male

DRUGS (4)
  1. DIBASE - 10.000 UI/ML GOCCE ORALI SOLUZIONE - ABIOGEN PHARMA S.P.A. [Concomitant]
     Active Substance: CHOLECALCIFEROL
     Indication: PRODUCT USED FOR UNKNOWN INDICATION
     Route: 048
  2. SINEMET [Concomitant]
     Active Substance: CARBIDOPA\LEVODOPA
     Indication: PARKINSON^S DISEASE
     Route: 048
  3. PRAMIPEXOLO TEVA ITALIA - 3.15 MG COMPRESSE A RILASCIO PROLUNGATO [Suspect]
     Active Substance: PRAMIPEXOLE
     Indication: PARKINSON^S DISEASE
     Dosage: 3.15 MILLIGRAM DAILY;
     Route: 048
     Dates: start: 20160701, end: 20160721
  4. LANSOPRAZOLO DOC GENERICI - 15 MG CAPSULE RIGIDE GASTRORESISTENTI [Concomitant]
     Active Substance: LANSOPRAZOLE
     Indication: PRODUCT USED FOR UNKNOWN INDICATION
     Route: 048

REACTIONS (4)
  - Drug effect decreased [Unknown]
  - Condition aggravated [Unknown]
  - Motor dysfunction [Unknown]
  - Product substitution issue [Unknown]
